FAERS Safety Report 4875044-6 (Version None)
Quarter: 2006Q1

REPORT INFORMATION
  Report Type: 
  Country: None (occurrence: None)
  Receive Date: 20060104
  Receipt Date: 20051221
  Transmission Date: 20060701
  Serious: Yes (Other)
  Sender: FDA-Public Use
  Company Number: 2005172865

PATIENT
  Age: 71 Year
  Sex: Female

DRUGS (5)
  1. HYDROXYZINE HCL [Suspect]
     Indication: ILL-DEFINED DISORDER
  2. SERTRALINE [Suspect]
     Indication: ILL-DEFINED DISORDER
  3. SULPIRIDE (SULPIRIDE) [Suspect]
     Indication: ILL-DEFINED DISORDER
  4. AMIODARONE HCL [Suspect]
     Indication: ILL-DEFINED DISORDER
  5. ACENOCOUMAROL (ACENOCOUMAROL) [Suspect]
     Indication: ILL-DEFINED DISORDER

REACTIONS (8)
  - AGITATION [None]
  - ANXIETY [None]
  - ASTHENIA [None]
  - DEPRESSED LEVEL OF CONSCIOUSNESS [None]
  - DRUG INEFFECTIVE [None]
  - HALLUCINATION, AUDITORY [None]
  - NIGHTMARE [None]
  - TREMOR [None]
